FAERS Safety Report 10178935 (Version 1)
Quarter: 2014Q2

REPORT INFORMATION
  Report Type: Spontaneous
  Country: US (occurrence: US)
  Receive Date: 20140519
  Receipt Date: 20140519
  Transmission Date: 20141212
  Serious: No
  Sender: FDA-Public Use
  Company Number: US-BIOGENIDEC-2014BI040876

PATIENT
  Age: 60 Year
  Sex: Female

DRUGS (10)
  1. TECFIDERA [Suspect]
     Indication: MULTIPLE SCLEROSIS
     Route: 048
  2. BACLOFEN [Concomitant]
  3. LEVOTHYROXINE SODIUM [Concomitant]
  4. OXYBUTYNIN CHLORIDE ER [Concomitant]
  5. TURMERIC [Concomitant]
  6. CALCIUM 600 [Concomitant]
  7. CINNAMON [Concomitant]
  8. MAGNESIUM [Concomitant]
  9. FLUORIDE [Concomitant]
  10. OMEGA 3 [Concomitant]

REACTIONS (2)
  - Oedema peripheral [Unknown]
  - Constipation [Unknown]
